FAERS Safety Report 8428035-2 (Version None)
Quarter: 2012Q2

REPORT INFORMATION
  Report Type: 
  Country: None (occurrence: None)
  Receive Date: 20120611
  Receipt Date: 20120529
  Transmission Date: 20120825
  Serious: Yes (Other)
  Sender: FDA-Public Use
  Company Number: CN-MYLANLABS-2012S1011085

PATIENT
  Age: 57 Year
  Sex: Female

DRUGS (4)
  1. CARBAMAZEPINE [Suspect]
     Indication: MULTIPLE SCLEROSIS
     Dosage: 0.6G DAILY
     Route: 065
  2. CARBAMAZEPINE [Suspect]
     Indication: CONVULSION
     Dosage: 0.6G DAILY
     Route: 065
  3. PHENYTOIN [Suspect]
     Indication: CONVULSION
     Dosage: 0.3G DAILY
     Route: 065
  4. PHENYTOIN [Suspect]
     Indication: MULTIPLE SCLEROSIS
     Dosage: 0.3G DAILY
     Route: 065

REACTIONS (3)
  - PEMPHIGUS [None]
  - MOUTH ULCERATION [None]
  - BLISTER [None]
